FAERS Safety Report 4560802-8 (Version None)
Quarter: 2005Q1

REPORT INFORMATION
  Report Type: 
  Country: None (occurrence: None)
  Receive Date: 20050124
  Receipt Date: 20050124
  Transmission Date: 20050727
  Serious: Yes (Other)
  Sender: FDA-Public Use
  Company Number: None

PATIENT
  Age: 37 Year
  Sex: Female
  Weight: 50.8029 kg

DRUGS (1)
  1. BEXTRA [Suspect]
     Dosage: 2X DAY OF SURGERY THEN 1X DAY EACH FOR 5 DAYS 10 MG TABLETS EA

REACTIONS (3)
  - RASH [None]
  - VISION BLURRED [None]
  - VISUAL ACUITY REDUCED [None]
